FAERS Safety Report 17389892 (Version 2)
Quarter: 2020Q1

REPORT INFORMATION
  Report Type: Spontaneous
  Country: CA (occurrence: CA)
  Receive Date: 20200207
  Receipt Date: 20200312
  Transmission Date: 20200409
  Serious: Yes (Other)
  Sender: FDA-Public Use
  Company Number: NVSC2020CA030297

PATIENT
  Weight: 1.5 kg

DRUGS (3)
  1. INDOMETHACIN. [Suspect]
     Active Substance: INDOMETHACIN
     Dosage: MATERNAL DOSE: 25 MG, QID
     Route: 064
  2. INDOMETHACIN. [Suspect]
     Active Substance: INDOMETHACIN
     Dosage: MATERNAL DOSE: INCREASED TO 300 MG PER DAY
     Route: 064
  3. INDOMETHACIN. [Suspect]
     Active Substance: INDOMETHACIN
     Indication: FOETAL EXPOSURE DURING PREGNANCY
     Dosage: MATERNAL DOSE: 100 MG (SINGLE DOSE)
     Route: 064

REACTIONS (3)
  - Premature baby [Unknown]
  - Hydrops foetalis [Unknown]
  - Foetal exposure during pregnancy [Unknown]
